FAERS Safety Report 18795467 (Version 4)
Quarter: 2021Q1

REPORT INFORMATION
  Report Type: Spontaneous
  Country: US (occurrence: US)
  Receive Date: 20210127
  Receipt Date: 20210216
  Transmission Date: 20210419
  Serious: Yes (Hospitalization, Other)
  Sender: FDA-Public Use
  Company Number: NVSC2021US016531

PATIENT
  Age: 18 Year
  Sex: Male
  Weight: 60 kg

DRUGS (2)
  1. CRIZANLIZUMAB [Suspect]
     Active Substance: CRIZANLIZUMAB
     Indication: SICKLE CELL ANAEMIA WITH CRISIS
     Dosage: 328 MG, QMO
     Route: 042
     Dates: start: 20201103, end: 20201103
  2. CRIZANLIZUMAB [Suspect]
     Active Substance: CRIZANLIZUMAB
     Indication: PAIN
     Dosage: MONTHLY
     Route: 042
     Dates: start: 20201218, end: 20201218

REACTIONS (3)
  - Musculoskeletal pain [Unknown]
  - Chest pain [Not Recovered/Not Resolved]
  - Chest discomfort [Unknown]

NARRATIVE: CASE EVENT DATE: 20201104
